FAERS Safety Report 8507844-5 (Version None)
Quarter: 2012Q3

REPORT INFORMATION
  Report Type: 
  Country: None (occurrence: None)
  Receive Date: 20120713
  Receipt Date: 20120712
  Transmission Date: 20120928
  Serious: Yes (Death)
  Sender: FDA-Public Use
  Company Number: PHHY2012NL003071

PATIENT
  Sex: Female
  Weight: 71 kg

DRUGS (9)
  1. ZOMETA [Suspect]
     Indication: BREAST CANCER METASTATIC
     Dosage: 4 MG / 100 ML, 1X PER 42 DAYS
     Route: 042
     Dates: start: 20081201
  2. ZOMETA [Suspect]
     Dosage: 4 MG / 100 ML, 1X PER 42 DAYS
     Route: 042
     Dates: start: 20111201
  3. ZOMETA [Suspect]
     Dosage: 4 MG / 100 ML, 1X PER 42 DAYS
     Route: 042
     Dates: start: 20120227
  4. XELODA [Concomitant]
  5. ZOMETA [Suspect]
     Dosage: 4 MG / 100 ML, 1X PER 42 DAYS
     Route: 042
     Dates: start: 20120112
  6. PREDNISONE TAB [Concomitant]
  7. ZOMETA [Suspect]
     Dosage: 4 MG / 100 ML, 1X PER 42 DAYS
     Route: 042
     Dates: start: 20120417
  8. ZOMETA [Suspect]
     Dosage: 4 MG / 100 ML, 1X PER 42 DAYS
     Route: 042
     Dates: start: 20110415
  9. SINTROM [Concomitant]

REACTIONS (8)
  - GENERAL PHYSICAL HEALTH DETERIORATION [None]
  - DYSPNOEA [None]
  - NEOPLASM PROGRESSION [None]
  - NEOPLASM MALIGNANT [None]
  - VOMITING [None]
  - PALLOR [None]
  - TREMOR [None]
  - COUGH [None]
